FAERS Safety Report 15364520 (Version 6)
Quarter: 2019Q1

REPORT INFORMATION
  Report Type: Spontaneous
  Country: DE (occurrence: DE)
  Receive Date: 20180909
  Receipt Date: 20190205
  Transmission Date: 20190417
  Serious: Yes (Other)
  Sender: FDA-Public Use
  Company Number: PHHY2018DE093125

PATIENT
  Sex: Male
  Weight: 61.5 kg

DRUGS (2)
  1. VALSARTAN 1 A PHARMA [Suspect]
     Active Substance: VALSARTAN
     Indication: HYPERTENSION
     Dosage: 1 DF, QD (1-0-0)
     Route: 048
     Dates: start: 20171208, end: 201803
  2. BUDESONIDE EASYHALER [Concomitant]
     Active Substance: BUDESONIDE
     Indication: ASTHMA
     Dosage: 0.2 MG, QD (PRN)
     Route: 055
     Dates: start: 2018

REACTIONS (14)
  - Nasopharyngitis [Recovering/Resolving]
  - Pharyngitis [Recovered/Resolved]
  - Eustachian tube disorder [Recovering/Resolving]
  - Sinusitis [Recovering/Resolving]
  - Lymphadenopathy [Recovering/Resolving]
  - Fatigue [Unknown]
  - Restlessness [Not Recovered/Not Resolved]
  - Drug intolerance [Unknown]
  - Upper airway obstruction [Unknown]
  - Cough [Unknown]
  - Sensation of foreign body [Unknown]
  - Product contamination [Unknown]
  - Productive cough [Recovering/Resolving]
  - Sneezing [Unknown]

NARRATIVE: CASE EVENT DATE: 201712
